FAERS Safety Report 7372462-1 (Version None)
Quarter: 2011Q1

REPORT INFORMATION
  Report Type: 
  Country: None (occurrence: None)
  Receive Date: 20110316
  Receipt Date: 20110307
  Transmission Date: 20110831
  Serious: Yes (Life-Threatening)
  Sender: FDA-Public Use
  Company Number: PI-05450

PATIENT
  Age: 55 Year
  Sex: Female

DRUGS (3)
  1. CHLORAPREP WITH TINT [Suspect]
     Indication: PREOPERATIVE CARE
     Dosage: 26ML,ONCE,TOPICAL
     Route: 061
     Dates: start: 20110307
  2. GENERAL ANESTHESIA [Concomitant]
  3. CLINDAMYCIN [Concomitant]

REACTIONS (2)
  - DRUG HYPERSENSITIVITY [None]
  - OXYGEN SATURATION DECREASED [None]
